FAERS Safety Report 6392301-5 (Version None)
Quarter: 2009Q4

REPORT INFORMATION
  Report Type: 
  Country: None (occurrence: None)
  Receive Date: 20091007
  Receipt Date: 20090929
  Transmission Date: 20100525
  Serious: Yes (Other)
  Sender: FDA-Public Use
  Company Number: HQWYE524603MAR04

PATIENT
  Sex: Male
  Weight: 83.85 kg

DRUGS (2)
  1. BENEFIX [Suspect]
     Indication: FACTOR IX DEFICIENCY
     Route: 042
     Dates: start: 20040211, end: 20040212
  2. BENEFIX [Suspect]
     Dosage: 5000 IU TWICE WEEKLY
     Route: 042
     Dates: start: 20040217, end: 20040218

REACTIONS (7)
  - ABDOMINAL PAIN [None]
  - CHEST PAIN [None]
  - DIZZINESS [None]
  - DYSPNOEA [None]
  - HOT FLUSH [None]
  - HYPERSENSITIVITY [None]
  - MALAISE [None]
